FAERS Safety Report 17583924 (Version 1)
Quarter: 2020Q1

REPORT INFORMATION
  Report Type: Spontaneous
  Country: US (occurrence: US)
  Receive Date: 20200326
  Receipt Date: 20200326
  Transmission Date: 20200409
  Serious: No
  Sender: FDA-Public Use
  Company Number: US-LUNDBECK-DKLU3014077

PATIENT
  Age: 59 Year
  Sex: Female

DRUGS (2)
  1. NORTHERA [Suspect]
     Active Substance: DROXIDOPA
     Indication: AUTONOMIC NEUROPATHY
     Dosage: TITRATION COMPLETE
     Route: 065
     Dates: start: 20191121
  2. NORTHERA [Interacting]
     Active Substance: DROXIDOPA
     Indication: ORTHOSTATIC HYPOTENSION

REACTIONS (4)
  - Fatigue [Unknown]
  - Drug ineffective [Unknown]
  - Drug interaction [Unknown]
  - Nausea [Unknown]

NARRATIVE: CASE EVENT DATE: 20191201
